FAERS Safety Report 18514639 (Version 1)
Quarter: 2020Q4

REPORT INFORMATION
  Report Type: Spontaneous
  Country: US (occurrence: US)
  Receive Date: 20201117
  Receipt Date: 20201117
  Transmission Date: 20210114
  Serious: Yes (Other)
  Sender: FDA-Public Use
  Company Number: US-009507513-2011USA007172

PATIENT
  Age: 71 Year
  Sex: Female

DRUGS (6)
  1. TRAMADOL HYDROCHLORIDE. [Suspect]
     Active Substance: TRAMADOL HYDROCHLORIDE
     Dosage: UNK
  2. ENBREL [Suspect]
     Active Substance: ETANERCEPT
     Indication: RHEUMATOID ARTHRITIS
     Dosage: 50 MG, QWK, UNIT: SURE CLICK, SOLUTION FOR INJECTION IN PRE-FILLED SYRINGE
     Dates: start: 20100101, end: 201301
  3. PRINIVIL [Suspect]
     Active Substance: LISINOPRIL
     Dosage: UNK
  4. PREDNISONE. [Concomitant]
     Active Substance: PREDNISONE
     Dosage: 6 MG, QD
  5. ALLEGRA [Concomitant]
     Active Substance: FEXOFENADINE HYDROCHLORIDE
     Indication: SEASONAL ALLERGY
     Dosage: UNK
  6. NORVASC [Concomitant]
     Active Substance: AMLODIPINE BESYLATE
     Dosage: UNK

REACTIONS (27)
  - Ocular hyperaemia [Not Recovered/Not Resolved]
  - Hypersensitivity [Not Recovered/Not Resolved]
  - Fall [Not Recovered/Not Resolved]
  - Irritable bowel syndrome [Not Recovered/Not Resolved]
  - Injection site reaction [Recovered/Resolved]
  - Musculoskeletal stiffness [Recovered/Resolved]
  - Hyperparathyroidism [Not Recovered/Not Resolved]
  - Urticaria [Not Recovered/Not Resolved]
  - Motor dysfunction [Recovered/Resolved]
  - Eye swelling [Not Recovered/Not Resolved]
  - Speech disorder [Not Recovered/Not Resolved]
  - Blood calcium abnormal [Recovered/Resolved]
  - Swelling face [Not Recovered/Not Resolved]
  - Lacrimation increased [Not Recovered/Not Resolved]
  - Diabetes mellitus [Not Recovered/Not Resolved]
  - Lip swelling [Not Recovered/Not Resolved]
  - Eye pruritus [Not Recovered/Not Resolved]
  - Paraesthesia oral [Not Recovered/Not Resolved]
  - Breath sounds abnormal [Not Recovered/Not Resolved]
  - Arthralgia [Not Recovered/Not Resolved]
  - Mobility decreased [Recovered/Resolved]
  - Dysphagia [Not Recovered/Not Resolved]
  - Diarrhoea [Not Recovered/Not Resolved]
  - Swollen tongue [Not Recovered/Not Resolved]
  - Parathyroid tumour benign [Recovered/Resolved]
  - Pain [Recovered/Resolved]
  - Joint instability [Not Recovered/Not Resolved]

NARRATIVE: CASE EVENT DATE: 2011
